FAERS Safety Report 8669693 (Version 2)
Quarter: 2013Q1

REPORT INFORMATION
  Report Type: Spontaneous
  Country: BR (occurrence: BR)
  Receive Date: 20120718
  Receipt Date: 20130130
  Transmission Date: 20140127
  Serious: Yes (Hospitalization, Other)
  Sender: FDA-Public Use
  Company Number: BR-AMGEN-BRASP2012043685

PATIENT
  Age: 56 Year
  Sex: Male
  Weight: 61 kg

DRUGS (1)
  1. MIMPARA [Suspect]
     Indication: HYPERPARATHYROIDISM
     Dosage: 30 MG, QD
     Route: 048
     Dates: start: 20120514, end: 20120709

REACTIONS (2)
  - Transplant [Recovered/Resolved]
  - Postoperative wound complication [Not Recovered/Not Resolved]
